FAERS Safety Report 8912349 (Version 2)
Quarter: 2013Q3

REPORT INFORMATION
  Report Type: Spontaneous
  Country: GB (occurrence: GB)
  Receive Date: 20121116
  Receipt Date: 20130905
  Transmission Date: 20140515
  Serious: Yes (Death, Life-Threatening, Hospitalization)
  Sender: FDA-Public Use
  Company Number: GB-ELI_LILLY_AND_COMPANY-GB201211003263

PATIENT
  Age: 73 Year
  Sex: Male
  Weight: 67.3 kg

DRUGS (8)
  1. GEMCITABINE HYDROCHLORIDE [Suspect]
     Indication: PANCREATIC CARCINOMA
     Dosage: 1862 MG, OTHER
     Route: 042
     Dates: start: 20120507, end: 20120507
  2. GEMCITABINE HYDROCHLORIDE [Suspect]
     Dosage: 1862 MG, OTHER
     Route: 042
     Dates: start: 20120910, end: 20120910
  3. BISOPROLOL [Concomitant]
  4. CREON [Concomitant]
  5. DIGOXIN [Concomitant]
  6. LOPERAMIDE [Concomitant]
  7. WARFARIN [Concomitant]
  8. GRANISETRON [Concomitant]

REACTIONS (5)
  - Interstitial lung disease [Fatal]
  - Respiratory failure [Fatal]
  - Hypoxia [Unknown]
  - Thrombosis [Not Recovered/Not Resolved]
  - Peripheral ischaemia [Unknown]
